FAERS Safety Report 6844726-9 (Version None)
Quarter: 2010Q3

REPORT INFORMATION
  Report Type: 
  Country: None (occurrence: None)
  Receive Date: 20100715
  Receipt Date: 20100712
  Transmission Date: 20110219
  Serious: Yes (Death, Hospitalization)
  Sender: FDA-Public Use
  Company Number: IT-BRISTOL-MYERS SQUIBB COMPANY-15157233

PATIENT
  Age: 59 Year
  Sex: Male

DRUGS (3)
  1. BARACLUDE [Suspect]
     Indication: HEPATITIS B
     Dates: start: 20100505, end: 20100621
  2. BARACLUDE [Suspect]
     Indication: HEPATIC CIRRHOSIS
     Dates: start: 20100505, end: 20100621
  3. ZESTORETIC [Concomitant]
     Indication: ESSENTIAL HYPERTENSION
     Dosage: 1DF=1TAB STRENGTH-20MG+12.5MG
     Route: 048
     Dates: start: 20091215

REACTIONS (4)
  - OESOPHAGEAL VARICES HAEMORRHAGE [None]
  - PNEUMONIA ASPIRATION [None]
  - RESPIRATORY FAILURE [None]
  - SEPTIC SHOCK [None]
